FAERS Safety Report 19736855 (Version 2)
Quarter: 2022Q1

REPORT INFORMATION
  Report Type: Report from Study
  Country: BE (occurrence: BE)
  Receive Date: 20210823
  Receipt Date: 20220202
  Transmission Date: 20220424
  Serious: Yes (Hospitalization)
  Sender: FDA-Public Use
  Company Number: BE-MERCK HEALTHCARE KGAA-9258444

PATIENT
  Age: 61 Year
  Sex: Male
  Weight: 77 kg

DRUGS (6)
  1. IRINOTECAN HYDROCHLORIDE [Suspect]
     Active Substance: IRINOTECAN HYDROCHLORIDE
     Indication: Colorectal cancer metastatic
     Dosage: 300 MG
     Route: 042
     Dates: start: 20210321
  2. IRINOTECAN HYDROCHLORIDE [Suspect]
     Active Substance: IRINOTECAN HYDROCHLORIDE
     Dosage: 300 MG
     Route: 042
     Dates: start: 20210730
  3. AVELUMAB [Suspect]
     Active Substance: AVELUMAB
     Indication: Colorectal cancer metastatic
     Dosage: 850 MG
     Route: 042
     Dates: start: 20210604
  4. AVELUMAB [Suspect]
     Active Substance: AVELUMAB
     Dosage: 800 MG
     Route: 042
     Dates: start: 20210730
  5. CETUXIMAB [Suspect]
     Active Substance: CETUXIMAB
     Indication: Colorectal cancer metastatic
     Dosage: 809 MG
     Route: 042
     Dates: start: 20210321
  6. CETUXIMAB [Suspect]
     Active Substance: CETUXIMAB
     Dosage: 1026 MG
     Route: 042
     Dates: start: 20210730

REACTIONS (1)
  - Colitis [Recovered/Resolved with Sequelae]

NARRATIVE: CASE EVENT DATE: 20210802
